FAERS Safety Report 4683983-4 (Version None)
Quarter: 2005Q2

REPORT INFORMATION
  Report Type: 
  Country: None (occurrence: None)
  Receive Date: 20050602
  Receipt Date: 20050301
  Transmission Date: 20051028
  Serious: No
  Sender: FDA-Public Use
  Company Number: 200510367BWH

PATIENT
  Age: 37 Year
  Sex: Male

DRUGS (1)
  1. LEVITRA [Suspect]
     Dosage: SEE IMAGE
     Route: 048
     Dates: start: 20050222

REACTIONS (1)
  - DRUG INEFFECTIVE [None]
